FAERS Safety Report 15802910 (Version 2)
Quarter: 2019Q2

REPORT INFORMATION
  Report Type: Spontaneous
  Country: US (occurrence: US)
  Receive Date: 20190109
  Receipt Date: 20190508
  Transmission Date: 20190711
  Serious: Yes (Other)
  Sender: FDA-Public Use
  Company Number: US-PFIZER INC-2019010338

PATIENT
  Age: 66 Year
  Sex: Female

DRUGS (1)
  1. GABAPENTIN. [Suspect]
     Active Substance: GABAPENTIN
     Indication: NEURALGIA
     Dosage: 50 MG, 3X/DAY

REACTIONS (5)
  - Loss of consciousness [Unknown]
  - Migraine [Not Recovered/Not Resolved]
  - Large intestine infection [Unknown]
  - Female genital tract fistula [Unknown]
  - Product use in unapproved indication [Unknown]

NARRATIVE: CASE EVENT DATE: 201511
